FAERS Safety Report 9788455 (Version 2)
Quarter: 2014Q2

REPORT INFORMATION
  Report Type: Spontaneous
  Country: CL (occurrence: CL)
  Receive Date: 20131230
  Receipt Date: 20140411
  Transmission Date: 20141212
  Serious: Yes (Other)
  Sender: FDA-Public Use
  Company Number: CL-PFIZER INC-2013370012

PATIENT
  Sex: Female

DRUGS (7)
  1. XALATAN [Suspect]
     Indication: GLAUCOMA
     Dosage: 1 DF, 1X/DAY
     Route: 047
     Dates: start: 200907, end: 201205
  2. CALCIUM [Concomitant]
  3. PROPOLIS [Concomitant]
  4. VIGAMOX [Concomitant]
  5. GANFORT [Concomitant]
  6. DINAFLEX DUO [Concomitant]
  7. LETROZOLE [Concomitant]

REACTIONS (4)
  - Eye disorder [Unknown]
  - Cataract [Unknown]
  - Breast cancer [Unknown]
  - Drug ineffective [Not Recovered/Not Resolved]
